FAERS Safety Report 8762961 (Version 1)
Quarter: 2012Q4

REPORT INFORMATION
  Report Type: Spontaneous
  Country: US (occurrence: None)
  Receive Date: 20120831
  Receipt Date: 20120831
  Transmission Date: 20130627
  Serious: Yes (Other)
  Sender: FDA-Public Use
  Company Number: None

PATIENT
  Sex: Female
  Weight: 54.43 kg

DRUGS (1)
  1. RESTASIS [Suspect]
     Indication: DRY EYE SYNDROME
     Dosage: 1 drop each eye 2 times @ day
     Dates: start: 20120606, end: 20120706

REACTIONS (6)
  - Burning sensation [None]
  - Photophobia [None]
  - Headache [None]
  - Drug ineffective [None]
  - Pruritus [None]
  - Pain [None]
